FAERS Safety Report 7471875-7 (Version None)
Quarter: 2011Q2

REPORT INFORMATION
  Report Type: 
  Country: None (occurrence: None)
  Receive Date: 20110511
  Receipt Date: 20100624
  Transmission Date: 20111010
  Serious: No
  Sender: FDA-Public Use
  Company Number: A0866942A

PATIENT
  Age: 69 Year
  Sex: Female

DRUGS (11)
  1. LIPITOR [Concomitant]
  2. XANAX [Concomitant]
  3. TYKERB [Suspect]
     Indication: BREAST CANCER
     Dosage: 5TAB PER DAY
     Route: 048
     Dates: start: 20100601, end: 20100622
  4. SYNTHROID [Concomitant]
  5. CENTRUM [Concomitant]
  6. VICODIN [Concomitant]
  7. LOTENSIN [Concomitant]
  8. COREG [Concomitant]
  9. IV FLUIDS [Concomitant]
  10. ASPIRIN [Concomitant]
  11. METFORMIN HCL [Concomitant]

REACTIONS (4)
  - ABDOMINAL PAIN UPPER [None]
  - DEHYDRATION [None]
  - FATIGUE [None]
  - DIARRHOEA [None]
